FAERS Safety Report 21184081 (Version 6)
Quarter: 2022Q4

REPORT INFORMATION
  Report Type: Spontaneous
  Country: US (occurrence: US)
  Receive Date: 20220808
  Receipt Date: 20221116
  Transmission Date: 20230113
  Serious: No
  Sender: FDA-Public Use
  Company Number: US-BIOGEN-2022BI01137526

PATIENT
  Age: 24 Year
  Sex: Male

DRUGS (1)
  1. TYSABRI [Suspect]
     Active Substance: NATALIZUMAB
     Indication: Multiple sclerosis
     Route: 050
     Dates: start: 20210414

REACTIONS (6)
  - Product dose omission issue [Recovered/Resolved]
  - Inappropriate schedule of product administration [Unknown]
  - Malaise [Not Recovered/Not Resolved]
  - Illness [Unknown]
  - Multiple sclerosis [Unknown]
  - Infection [Unknown]

NARRATIVE: CASE EVENT DATE: 20220803
